FAERS Safety Report 8490297-3 (Version None)
Quarter: 2012Q3

REPORT INFORMATION
  Report Type: 
  Country: None (occurrence: None)
  Receive Date: 20120705
  Receipt Date: 20120605
  Transmission Date: 20120928
  Serious: No
  Sender: FDA-Public Use
  Company Number: US-BAUSCH-2012BL003780

PATIENT
  Age: 77 Year
  Sex: Female

DRUGS (1)
  1. OPCON-A [Suspect]
     Indication: OCULAR HYPERAEMIA
     Route: 047
     Dates: start: 20120602, end: 20120602

REACTIONS (4)
  - MUSCULAR WEAKNESS [None]
  - DIZZINESS [None]
  - BLOOD GLUCOSE INCREASED [None]
  - NAUSEA [None]
